FAERS Safety Report 4741915-4 (Version None)
Quarter: 2005Q3

REPORT INFORMATION
  Report Type: 
  Country: None (occurrence: None)
  Receive Date: 20050801
  Receipt Date: 20050617
  Transmission Date: 20060218
  Serious: No
  Sender: FDA-Public Use
  Company Number: 2005PV000059

PATIENT
  Age: 53 Year
  Sex: Female
  Weight: 113.3993 kg

DRUGS (4)
  1. BYETTA [Suspect]
     Indication: DIABETES MELLITUS NON-INSULIN-DEPENDENT
     Dosage: 5 UG;BID;SC
     Route: 058
     Dates: start: 20050616
  2. DIOVAN HCT [Concomitant]
  3. KLONOPIN [Concomitant]
  4. PROZAC [Concomitant]

REACTIONS (5)
  - DIZZINESS [None]
  - GASTROINTESTINAL HYPOMOTILITY [None]
  - MICTURITION FREQUENCY DECREASED [None]
  - NAUSEA [None]
  - VOMITING [None]
